FAERS Safety Report 4942744-9 (Version None)
Quarter: 2006Q1

REPORT INFORMATION
  Report Type: 
  Country: None (occurrence: None)
  Receive Date: 20060314
  Receipt Date: 20031215
  Transmission Date: 20060701
  Serious: No
  Sender: FDA-Public Use
  Company Number: A0443144A

PATIENT
  Age: 62 Year
  Sex: Female

DRUGS (1)
  1. NICORETTE [Suspect]
     Route: 002
     Dates: start: 20030101, end: 20030101

REACTIONS (1)
  - BURNING SENSATION MUCOSAL [None]
